FAERS Safety Report 15683995 (Version 1)
Quarter: 2018Q4

REPORT INFORMATION
  Report Type: Report from Study
  Country: US (occurrence: US)
  Receive Date: 20181204
  Receipt Date: 20181204
  Transmission Date: 20190205
  Serious: Yes (Hospitalization)
  Sender: FDA-Public Use
  Company Number: US-CONCORDIA PHARMACEUTICALS INC.-GSH201811-004016

PATIENT
  Age: 69 Year
  Sex: Male
  Weight: 62.9 kg

DRUGS (6)
  1. IBUPROFEN. [Concomitant]
     Active Substance: IBUPROFEN
     Dates: start: 20180520
  2. ABRAXANE [Suspect]
     Active Substance: PACLITAXEL
     Indication: ADENOCARCINOMA PANCREAS
     Dosage: (DAYS 1, 8, 15)
     Route: 042
     Dates: start: 20180517
  3. ELIQUIS [Concomitant]
     Active Substance: APIXABAN
  4. AVELUMAB [Suspect]
     Active Substance: AVELUMAB
     Dosage: (DAYS 1, 15)
     Route: 042
     Dates: start: 20180510
  5. HYDROXYCHLOROQUINE [Suspect]
     Active Substance: HYDROXYCHLOROQUINE
     Route: 048
     Dates: start: 20180508, end: 20180521
  6. GEMCITABINE HYDROCHLORIDE. [Suspect]
     Active Substance: GEMCITABINE HYDROCHLORIDE
     Indication: ADENOCARCINOMA PANCREAS
     Dosage: (DAYS 1, 8, 15)
     Route: 042
     Dates: start: 20180510

REACTIONS (1)
  - Faeces discoloured [Recovered/Resolved]

NARRATIVE: CASE EVENT DATE: 20180521
